FAERS Safety Report 7995190-8 (Version None)
Quarter: 2011Q4

REPORT INFORMATION
  Report Type: 
  Country: None (occurrence: None)
  Receive Date: 20111220
  Receipt Date: 20111019
  Transmission Date: 20120403
  Serious: No
  Sender: FDA-Public Use
  Company Number: US-MYLANLABS-2011S1021753

PATIENT
  Sex: Female

DRUGS (1)
  1. NIFEDIPINE [Suspect]
     Indication: HEART VALVE INCOMPETENCE
     Route: 048
     Dates: start: 20110701, end: 20111001

REACTIONS (4)
  - SWELLING [None]
  - ANXIETY [None]
  - FEELING ABNORMAL [None]
  - MEDICATION RESIDUE [None]
